FAERS Safety Report 10224401 (Version 1)
Quarter: 2014Q2

REPORT INFORMATION
  Report Type: Spontaneous
  Country: US (occurrence: US)
  Receive Date: 20140609
  Receipt Date: 20140609
  Transmission Date: 20141212
  Serious: No
  Sender: FDA-Public Use
  Company Number: US-PFIZER INC-2014157488

PATIENT
  Age: 59 Year
  Sex: Male
  Weight: 145 kg

DRUGS (3)
  1. GABAPENTIN [Suspect]
     Indication: PAIN
     Dosage: 600 MG, DAILY
  2. GABAPENTIN [Suspect]
     Indication: NERVE INJURY
  3. INSULIN [Concomitant]
     Indication: DIABETES MELLITUS
     Dosage: 100 IU, DAILY

REACTIONS (1)
  - Drug ineffective [Unknown]
